FAERS Safety Report 9629646 (Version 2)
Quarter: 2013Q4

REPORT INFORMATION
  Report Type: Spontaneous
  Country: US (occurrence: US)
  Receive Date: 20131017
  Receipt Date: 20131120
  Transmission Date: 20140711
  Serious: No
  Sender: FDA-Public Use
  Company Number: US-PFIZER INC-2013294049

PATIENT
  Age: 77 Year
  Sex: Male

DRUGS (21)
  1. SOMAVERT [Suspect]
     Indication: ACROMEGALY
     Dosage: 20 MG, DAILY
     Route: 058
     Dates: start: 20111201
  2. SOMAVERT [Suspect]
     Indication: ACROMEGALY
  3. SOMAVERT [Suspect]
     Indication: GIGANTISM
  4. GLYCOLAX [Concomitant]
     Dosage: UNK
  5. AVASTIN [Concomitant]
     Dosage: UNK
  6. OMEGA-3 [Concomitant]
     Dosage: UNK
  7. VITAMIN B COMPLEX [Concomitant]
     Dosage: UNK
  8. VITAMIN C [Concomitant]
     Dosage: UNK
  9. IRON [Concomitant]
     Dosage: UNK
  10. PRESERVISION AREDS 2 [Concomitant]
     Dosage: UNK
  11. CENTRUM SILVER [Concomitant]
     Dosage: UNK
  12. ASPIRIN (E.C.) [Concomitant]
     Dosage: UNK
  13. LUMIGAN [Concomitant]
     Dosage: UNK
  14. AZILECT [Concomitant]
     Dosage: UNK
  15. COMTAN [Concomitant]
     Dosage: UNK
  16. SANDOSTATIN LAR DEPOT [Concomitant]
     Dosage: UNK
  17. LASIX [Concomitant]
     Dosage: UNK
  18. KLOR-CON M20 [Concomitant]
     Dosage: UNK
  19. COREG CR [Concomitant]
     Dosage: UNK
  20. DIOVAN HCT [Concomitant]
     Dosage: UNK
  21. LANSOPRAZOLE [Concomitant]
     Dosage: UNK

REACTIONS (1)
  - Injection site bruising [Unknown]
